FAERS Safety Report 19786718 (Version 3)
Quarter: 2022Q4

REPORT INFORMATION
  Report Type: Spontaneous
  Country: DK (occurrence: None)
  Receive Date: 20210903
  Receipt Date: 20221220
  Transmission Date: 20230113
  Serious: Yes (Other)
  Sender: FDA-Public Use
  Company Number: 2021A706323

PATIENT
  Age: 62 Year
  Sex: Female

DRUGS (6)
  1. OSIMERTINIB [Suspect]
     Active Substance: OSIMERTINIB
     Indication: Lung adenocarcinoma
     Route: 048
  2. OSIMERTINIB [Suspect]
     Active Substance: OSIMERTINIB
     Indication: Lung adenocarcinoma
     Route: 048
  3. OSIMERTINIB [Suspect]
     Active Substance: OSIMERTINIB
     Indication: Lung adenocarcinoma
     Route: 048
  4. PRALSETINIB [Suspect]
     Active Substance: PRALSETINIB
     Route: 065
  5. PRALSETINIB [Suspect]
     Active Substance: PRALSETINIB
     Route: 065
  6. PEMETREXED/CARBOPLATIN [Concomitant]
     Indication: Chemotherapy
     Dosage: THREE CYCLES

REACTIONS (5)
  - Drug resistance [Recovering/Resolving]
  - Acquired gene mutation [Recovering/Resolving]
  - Malignant neoplasm progression [Recovering/Resolving]
  - Metastases to liver [Recovering/Resolving]
  - Interstitial lung disease [Recovered/Resolved]
